FAERS Safety Report 11803858 (Version 2)
Quarter: 2015Q4

REPORT INFORMATION
  Report Type: Spontaneous
  Country: US (occurrence: US)
  Receive Date: 20151204
  Receipt Date: 20151204
  Transmission Date: 20160305
  Serious: Yes (Hospitalization, Other)
  Sender: FDA-Public Use
  Company Number: PHHY2015US157094

PATIENT
  Age: 23 Year
  Sex: Male

DRUGS (12)
  1. MYCOPHENOLIC ACID. [Suspect]
     Active Substance: MYCOPHENOLIC ACID
     Indication: STEM CELL TRANSPLANT
     Route: 065
  2. TACROLIMUS. [Suspect]
     Active Substance: TACROLIMUS
     Indication: IMMUNOSUPPRESSION
  3. FOSCARNET [Suspect]
     Active Substance: FOSCARNET
     Indication: IMMUNOSUPPRESSION
  4. TACROLIMUS. [Suspect]
     Active Substance: TACROLIMUS
     Indication: STEM CELL TRANSPLANT
     Route: 065
  5. PENTAMIDINE [Suspect]
     Active Substance: PENTAMIDINE
     Indication: STEM CELL TRANSPLANT
     Route: 065
  6. MYCOPHENOLIC ACID. [Suspect]
     Active Substance: MYCOPHENOLIC ACID
     Indication: IMMUNOSUPPRESSION
  7. PREDNISONE. [Suspect]
     Active Substance: PREDNISONE
     Indication: STEM CELL TRANSPLANT
     Route: 065
  8. PREDNISONE. [Suspect]
     Active Substance: PREDNISONE
     Indication: IMMUNOSUPPRESSION
  9. FOSCARNET [Suspect]
     Active Substance: FOSCARNET
     Indication: STEM CELL TRANSPLANT
     Route: 065
  10. VORICONAZOLE. [Suspect]
     Active Substance: VORICONAZOLE
     Indication: STEM CELL TRANSPLANT
     Route: 065
  11. VORICONAZOLE. [Suspect]
     Active Substance: VORICONAZOLE
     Indication: IMMUNOSUPPRESSION
  12. PENTAMIDINE [Suspect]
     Active Substance: PENTAMIDINE
     Indication: IMMUNOSUPPRESSION

REACTIONS (6)
  - Syncope [Unknown]
  - Rhonchi [Unknown]
  - Central nervous system lesion [Unknown]
  - Hypotension [Unknown]
  - Interstitial lung disease [Unknown]
  - Pyrexia [Unknown]
